FAERS Safety Report 18980913 (Version 2)
Quarter: 2021Q2

REPORT INFORMATION
  Report Type: Report from Study
  Country: US (occurrence: US)
  Receive Date: 20210308
  Receipt Date: 20210408
  Transmission Date: 20210717
  Serious: Yes (Hospitalization, Other)
  Sender: FDA-Public Use
  Company Number: US-PFIZER INC-2020410231

PATIENT
  Age: 78 Year
  Sex: Female
  Weight: 101.13 kg

DRUGS (4)
  1. IBRANCE [Suspect]
     Active Substance: PALBOCICLIB
     Dosage: 100 MG, CYCLIC (EVERY OTHER DAY 21 DAYS ON, 7 DAYS OFF)
     Route: 048
     Dates: start: 20201125
  2. IBRANCE [Suspect]
     Active Substance: PALBOCICLIB
     Dosage: 75 MG, CYCLIC, ALTERNATE DAY [TOTAL OF 12 DOSES THEN 1 WEEK OFF]
     Route: 048
     Dates: start: 20201229, end: 20210117
  3. LETROZOLE. [Concomitant]
     Active Substance: LETROZOLE
     Indication: BREAST CANCER FEMALE
     Dosage: 2.5 MG, 1X/DAY QD (ONCE A DAY)
     Dates: start: 20201005
  4. IBRANCE [Suspect]
     Active Substance: PALBOCICLIB
     Indication: BREAST CANCER METASTATIC
     Dosage: 100 MG, CYCLIC (ONCE DAILY FOR 21 DAYS OUT OF 28 DAYS)/(21 DAYS ON, 7 DAYS OFF)/(DAILY)
     Route: 048
     Dates: start: 20201014, end: 20201103

REACTIONS (18)
  - Leukopenia [Recovered/Resolved]
  - Product use issue [Unknown]
  - Oxygen saturation decreased [Recovered/Resolved]
  - Arthralgia [Unknown]
  - Peripheral swelling [Unknown]
  - Off label use [Unknown]
  - Hypertension [Unknown]
  - Product dose omission in error [Unknown]
  - Carbon dioxide increased [Recovered/Resolved]
  - Somnolence [Unknown]
  - Pleural effusion [Recovered/Resolved]
  - Epistaxis [Recovered/Resolved]
  - Disease recurrence [Recovered/Resolved]
  - Fatigue [Unknown]
  - Dyspnoea [Recovered/Resolved]
  - Pneumonia [Recovered/Resolved]
  - Blood count abnormal [Unknown]
  - Productive cough [Recovering/Resolving]

NARRATIVE: CASE EVENT DATE: 2020
